FAERS Safety Report 13828662 (Version 1)
Quarter: 2017Q3

REPORT INFORMATION
  Report Type: Spontaneous
  Country: US (occurrence: US)
  Receive Date: 20170802
  Receipt Date: 20170802
  Transmission Date: 20171127
  Serious: Yes (Hospitalization)
  Sender: FDA-Public Use
  Company Number: None

PATIENT
  Age: 33 Year
  Sex: Female

DRUGS (2)
  1. IBUPROFEN. [Concomitant]
     Active Substance: IBUPROFEN
  2. PARAGARD T 380A [Suspect]
     Active Substance: COPPER

REACTIONS (5)
  - Vaginal haemorrhage [None]
  - Movement disorder [None]
  - Uterine perforation [None]
  - Device dislocation [None]
  - Muscle spasms [None]

NARRATIVE: CASE EVENT DATE: 20170728
